FAERS Safety Report 20795152 (Version 2)
Quarter: 2022Q2

REPORT INFORMATION
  Report Type: Spontaneous
  Country: IT (occurrence: IT)
  Receive Date: 20220506
  Receipt Date: 20220531
  Transmission Date: 20220721
  Serious: Yes (Death, Life-Threatening, Other)
  Sender: FDA-Public Use
  Company Number: IT-AMGEN-ITASP2022072905

PATIENT

DRUGS (5)
  1. DARBEPOETIN ALFA [Suspect]
     Active Substance: DARBEPOETIN ALFA
     Indication: Myelodysplastic syndrome
     Dosage: UNK, QWK
     Route: 065
  2. LENALIDOMIDE [Concomitant]
     Active Substance: LENALIDOMIDE
  3. DANAZOL [Concomitant]
     Active Substance: DANAZOL
  4. CYCLOSPORINE [Concomitant]
     Active Substance: CYCLOSPORINE
  5. ELTROMBOPAG [Concomitant]
     Active Substance: ELTROMBOPAG

REACTIONS (5)
  - Acute myeloid leukaemia [Fatal]
  - Cytopenia [Fatal]
  - Pneumonia [Fatal]
  - Drug ineffective for unapproved indication [Unknown]
  - Off label use [Unknown]
